FAERS Safety Report 8337021-2 (Version None)
Quarter: 2012Q2

REPORT INFORMATION
  Report Type: 
  Country: None (occurrence: None)
  Receive Date: 20120504
  Receipt Date: 20110725
  Transmission Date: 20120825
  Serious: No
  Sender: FDA-Public Use
  Company Number: US-TEVA-2011002886

PATIENT
  Sex: Female
  Weight: 69.916 kg

DRUGS (5)
  1. CALCIUM GLUCONATE [Concomitant]
  2. BACLOFEN [Concomitant]
  3. NUVIGIL [Suspect]
     Indication: FATIGUE
     Dosage: 150 MILLIGRAM;
     Route: 048
     Dates: start: 20110601, end: 20110601
  4. SERTRALINE HYDROCHLORIDE [Concomitant]
  5. MULTI-VITAMIN [Concomitant]

REACTIONS (1)
  - INSOMNIA [None]
